FAERS Safety Report 15754246 (Version 3)
Quarter: 2019Q4

REPORT INFORMATION
  Report Type: Report from Study
  Country: US (occurrence: US)
  Receive Date: 20181223
  Receipt Date: 20191114
  Transmission Date: 20200122
  Serious: Yes (Hospitalization)
  Sender: FDA-Public Use
  Company Number: US-ACTELION-A-NJ2018-173122

PATIENT
  Age: 1 Year
  Sex: Male

DRUGS (2)
  1. LETAIRIS [Concomitant]
     Active Substance: AMBRISENTAN
     Indication: PRODUCT USED FOR UNKNOWN INDICATION
     Route: 048
  2. OPSUMIT [Suspect]
     Active Substance: MACITENTAN
     Indication: PRODUCT USED FOR UNKNOWN INDICATION
     Dosage: 10 MG, UNK
     Route: 048
     Dates: start: 20180524

REACTIONS (4)
  - Product use issue [Unknown]
  - Hospitalisation [Unknown]
  - Haemoglobin decreased [Unknown]
  - Product administration error [Unknown]

NARRATIVE: CASE EVENT DATE: 20180524
